FAERS Safety Report 7571636 (Version 4)
Quarter: 2012Q4

REPORT INFORMATION
  Report Type: Report from Study
  Country: US (occurrence: US)
  Receive Date: 20100902
  Receipt Date: 20120829
  Transmission Date: 20130627
  Serious: Yes (Death)
  Sender: FDA-Public Use
  Company Number: US-ROCHE-724208

PATIENT
  Age: 61 None
  Sex: Female
  Weight: 51.7 kg

DRUGS (17)
  1. AVASTIN [Suspect]
     Indication: NON-SMALL CELL LUNG CANCER
     Dosage: INDUCTION THERAPY COMPLETED
     Route: 042
     Dates: start: 20100402, end: 20100610
  2. AVASTIN [Suspect]
     Dosage: MAINTENANCE THERAPY
     Route: 042
  3. PACLITAXEL [Suspect]
     Indication: NON-SMALL CELL LUNG CANCER
     Route: 042
     Dates: start: 20100402, end: 20100610
  4. CARBOPLATIN [Suspect]
     Indication: NON-SMALL CELL LUNG CANCER
     Dosage: DOSE:6 AUC
     Route: 042
     Dates: start: 20100402, end: 20100610
  5. DEXAMETHASONE [Concomitant]
  6. BENADRYL [Concomitant]
  7. PALONOSETRON [Concomitant]
  8. RANITIDINE [Concomitant]
  9. JANTOVEN [Concomitant]
  10. ZOMETA [Concomitant]
  11. ACETYLSALICYLIC ACID [Concomitant]
  12. LORTAB [Concomitant]
  13. OMEPRAZOLE [Concomitant]
  14. COMPAZINE [Concomitant]
  15. COLACE [Concomitant]
  16. AMLODIPINE [Concomitant]
  17. CIPROFLOXACIN [Concomitant]
     Dates: start: 20100322, end: 20100601

REACTIONS (1)
  - Cardiac arrest [Fatal]
